FAERS Safety Report 9933879 (Version 1)
Quarter: 2014Q1

REPORT INFORMATION
  Report Type: Spontaneous
  Country: US (occurrence: US)
  Receive Date: 20140228
  Receipt Date: 20140228
  Transmission Date: 20141002
  Serious: No
  Sender: FDA-Public Use
  Company Number: US-MYLANLABS-2013S1017856

PATIENT
  Age: 19 Year
  Sex: Female
  Weight: 72.58 kg

DRUGS (2)
  1. AMNESTEEM CAPSULES [Suspect]
     Indication: ACNE
     Route: 048
     Dates: start: 201306, end: 201307
  2. ORAL CONTRACEPTIVE NOS [Suspect]
     Indication: CONTRACEPTION
     Route: 048
     Dates: start: 201305

REACTIONS (1)
  - Hepatic enzyme increased [Not Recovered/Not Resolved]
